FAERS Safety Report 8164138-8 (Version None)
Quarter: 2012Q1

REPORT INFORMATION
  Report Type: 
  Country: None (occurrence: None)
  Receive Date: 20120224
  Receipt Date: 20120126
  Transmission Date: 20120608
  Serious: Yes (Hospitalization)
  Sender: FDA-Public Use
  Company Number: CHPA2012US000958

PATIENT
  Age: 55 Year
  Sex: Female

DRUGS (6)
  1. CELEXA [Concomitant]
     Indication: MIGRAINE
     Dosage: 20 MG, BID
     Route: 048
  2. WATER PILLS [Concomitant]
     Indication: HYPERTENSION
     Dosage: UNK DF, QD
     Route: 048
  3. ACETAMINOPHEN [Concomitant]
     Indication: PAIN
     Dosage: UNK DF, TIW
     Route: 048
     Dates: start: 20110901
  4. POTASSIUM SUPPLEMENTS [Concomitant]
     Indication: SUPPLEMENTATION THERAPY
     Dosage: 10 MEQ, QD
     Route: 048
  5. EXCEDRIN (MIGRAINE) [Suspect]
     Indication: MIGRAINE
     Dosage: 8-9 DF, QD
     Route: 048
     Dates: start: 20000101, end: 20110901
  6. CARDORAL [Concomitant]
     Indication: HYPERTENSION
     Dosage: UNK DF, QD
     Route: 048

REACTIONS (6)
  - GASTROINTESTINAL ULCER HAEMORRHAGE [None]
  - BLOOD IRON DECREASED [None]
  - HAEMOGLOBIN DECREASED [None]
  - OVERDOSE [None]
  - DRUG WITHDRAWAL HEADACHE [None]
  - BLOOD POTASSIUM DECREASED [None]
